FAERS Safety Report 5282275-2 (Version None)
Quarter: 2007Q1

REPORT INFORMATION
  Report Type: 
  Country: None (occurrence: None)
  Receive Date: 20070331
  Receipt Date: 20070320
  Transmission Date: 20070707
  Serious: Yes (Life-Threatening)
  Sender: FDA-Public Use
  Company Number: IT-PFIZER INC-2007023147

PATIENT
  Age: 35 Year
  Sex: Female

DRUGS (1)
  1. UNASYN [Suspect]
     Dosage: TEXT:1G+500 MG; 1 UNIT-FREQ:FREQUENCY: ONCE
     Route: 042
     Dates: start: 20070309, end: 20070309

REACTIONS (6)
  - FLUSHING [None]
  - HYPERHIDROSIS [None]
  - HYPERSENSITIVITY [None]
  - HYPOTENSION [None]
  - PARAESTHESIA ORAL [None]
  - PSYCHOMOTOR HYPERACTIVITY [None]
